FAERS Safety Report 24539789 (Version 1)
Quarter: 2024Q4

REPORT INFORMATION
  Report Type: Spontaneous
  Country: US (occurrence: None)
  Receive Date: 20241022
  Receipt Date: 20241022
  Transmission Date: 20250114
  Serious: Yes (Life-Threatening)
  Sender: Public
  Company Number: None

PATIENT
  Age: 81 Year
  Sex: Male
  Weight: 71 kg

DRUGS (1)
  1. LEUPROLIDE ACETATE [Suspect]
     Active Substance: LEUPROLIDE ACETATE
     Indication: Prostate cancer
     Dosage: OTHER FREQUENCY : ONCE;?
     Route: 058
     Dates: start: 20240131, end: 20240131

REACTIONS (8)
  - Dizziness [None]
  - Syncope [None]
  - Vomiting [None]
  - Nausea [None]
  - Unresponsive to stimuli [None]
  - Loss of consciousness [None]
  - Blood pressure decreased [None]
  - Blood glucose decreased [None]

NARRATIVE: CASE EVENT DATE: 20240131
